FAERS Safety Report 4911154-2 (Version None)
Quarter: 2006Q1

REPORT INFORMATION
  Report Type: 
  Country: None (occurrence: None)
  Receive Date: 20060209
  Receipt Date: 20060124
  Transmission Date: 20060701
  Serious: Yes (Other)
  Sender: FDA-Public Use
  Company Number: GB200601001939

PATIENT
  Age: 36 Year
  Sex: Female
  Weight: 55 kg

DRUGS (2)
  1. YENTREVE (DULOXETINE HYDROCHLORIDE UNKNOWN FORMULATION) [Suspect]
     Indication: STRESS INCONTINENCE
     Dosage: 40 MG, 2/D, ORAL
     Route: 048
     Dates: start: 20060107, end: 20060109
  2. FEMULEN (ETYNODIOL DIACETATE) [Concomitant]

REACTIONS (26)
  - ABDOMINAL RIGIDITY [None]
  - ANGER [None]
  - ANOREXIA [None]
  - ANXIETY [None]
  - ASTHENIA [None]
  - BLOOD PRESSURE INCREASED [None]
  - DIZZINESS [None]
  - DRY MOUTH [None]
  - DYSTONIA [None]
  - FALL [None]
  - FEELING ABNORMAL [None]
  - HEADACHE [None]
  - HEART RATE INCREASED [None]
  - HOT FLUSH [None]
  - IMPAIRED DRIVING ABILITY [None]
  - LOSS OF CONSCIOUSNESS [None]
  - MALAISE [None]
  - MIDDLE INSOMNIA [None]
  - MUSCULAR WEAKNESS [None]
  - MYDRIASIS [None]
  - PALPITATIONS [None]
  - PARALYSIS [None]
  - PARAPLEGIA [None]
  - STRESS [None]
  - SYNCOPE [None]
  - TREMOR [None]
